FAERS Safety Report 5515107-5 (Version None)
Quarter: 2007Q4

REPORT INFORMATION
  Report Type: 
  Country: None (occurrence: None)
  Receive Date: 20071113
  Receipt Date: 20070103
  Transmission Date: 20080405
  Serious: No
  Sender: FDA-Public Use
  Company Number: A0634552A

PATIENT
  Age: 82 Year
  Sex: Female

DRUGS (1)
  1. COREG [Suspect]

REACTIONS (2)
  - CONDITION AGGRAVATED [None]
  - RAYNAUD'S PHENOMENON [None]
